FAERS Safety Report 16991535 (Version 2)
Quarter: 2020Q1

REPORT INFORMATION
  Report Type: Report from Study
  Country: None (occurrence: US)
  Receive Date: 20191104
  Receipt Date: 20200218
  Transmission Date: 20200409
  Serious: Yes (Hospitalization, Other)
  Sender: FDA-Public Use
  Company Number: US-ABBVIE-19K-163-2982973-00

PATIENT
  Sex: Female
  Weight: 70.37 kg

DRUGS (3)
  1. ORILISSA [Suspect]
     Active Substance: ELAGOLIX SODIUM
     Indication: ENDOMETRIOSIS
     Route: 048
     Dates: start: 20181108
  2. MIDOL [Concomitant]
     Active Substance: IBUPROFEN
     Indication: PAIN
  3. PAMPRIN [Concomitant]
     Active Substance: IBUPROFEN
     Indication: PAIN

REACTIONS (2)
  - Hysterectomy [Recovered/Resolved]
  - Endometrial disorder [Recovered/Resolved]
